FAERS Safety Report 9160435 (Version 1)
Quarter: 2013Q1

REPORT INFORMATION
  Report Type: Spontaneous
  Country: DK (occurrence: None)
  Receive Date: 20130204
  Receipt Date: 20130204
  Transmission Date: 20140127
  Serious: Yes (Other)
  Sender: FDA-Public Use
  Company Number: 2013MA000770

PATIENT
  Age: 6 Year
  Sex: Male

DRUGS (7)
  1. PHENYTOIN [Suspect]
     Indication: EPILEPSY
     Route: 042
     Dates: start: 20121226, end: 20121226
  2. SUXAMETHONIUM [Suspect]
     Indication: PARALYSIS
     Route: 042
     Dates: start: 20121226, end: 20121226
  3. CLOBAZAM [Concomitant]
  4. LEVETIRACETAM [Concomitant]
  5. TOPIRAMATE [Concomitant]
  6. DIPRIVAN [Suspect]
     Route: 042
     Dates: start: 20121226, end: 20121226
  7. ATRACURIUM [Suspect]
     Route: 042
     Dates: start: 20121226, end: 20121226

REACTIONS (2)
  - Thrombocytopenia [None]
  - Blood creatine phosphokinase increased [None]
